FAERS Safety Report 5685057-2 (Version None)
Quarter: 2008Q1

REPORT INFORMATION
  Report Type: 
  Country: None (occurrence: None)
  Receive Date: 20080328
  Receipt Date: 19991117
  Transmission Date: 20080703
  Serious: Yes (Death, Other)
  Sender: FDA-Public Use
  Company Number: CA-ROCHE-221319

PATIENT
  Age: 72 Year
  Sex: Male

DRUGS (6)
  1. ROCEPHIN [Suspect]
     Indication: PSEUDOMONAS INFECTION
     Dosage: RECEIVED 5 DOSES.
     Route: 042
  2. FLAGYL [Concomitant]
     Route: 042
     Dates: start: 19991107
  3. FAMOTIDINE [Concomitant]
     Route: 042
     Dates: start: 19990922
  4. LASIX [Concomitant]
     Route: 042
     Dates: start: 19991109
  5. DANAPAROID SODIUM [Concomitant]
     Route: 042
     Dates: start: 19991016
  6. TPN [Concomitant]
     Route: 042

REACTIONS (2)
  - DEATH [None]
  - HICCUPS [None]
